FAERS Safety Report 9698217 (Version 1)
Quarter: 2013Q4

REPORT INFORMATION
  Report Type: Spontaneous
  Country: US (occurrence: None)
  Receive Date: 20131112
  Receipt Date: 20131112
  Transmission Date: 20140711
  Serious: Yes (Other)
  Sender: FDA-Public Use
  Company Number: 2011028335

PATIENT
  Sex: Male
  Weight: 65.77 kg

DRUGS (11)
  1. ZEMAIRA [Suspect]
     Indication: ALPHA-1 ANTI-TRYPSIN DEFICIENCY
     Dosage: 4500MG 1X/WEEK, 6 ML/MIN INTRAVENOUS (NOT OTHERWISE SPECIFIED)
     Route: 042
     Dates: start: 20110421
  2. ADVAIR (SERETIDE/01420901/) [Concomitant]
  3. SPIRIVA (TIOTROPIUM BROMIDE) (TIOTROPIUM BROMIDE) [Concomitant]
  4. ALBUTEROL (SALBUTAMOL) [Concomitant]
  5. PREDNISONE (PREDNISONE) [Concomitant]
  6. DIPHENHYDRAMINE  (DIPHENHYDRAMINE) [Concomitant]
  7. EPINEPHRINE (EPINEPHRINE) [Concomitant]
  8. LIDOCAINE/PRILOCAINE (EMLA/00675501/) [Concomitant]
  9. SODIUM CHLORIDE [Concomitant]
  10. VENTOLIN (SALBUTAMOL) [Concomitant]
  11. ADVAIR (SERETIDE/01420901/) [Concomitant]

REACTIONS (4)
  - Infection [None]
  - Dyspnoea [None]
  - Lung infection [None]
  - Mycobacterial infection [None]
